FAERS Safety Report 4413847-2 (Version None)
Quarter: 2004Q3

REPORT INFORMATION
  Report Type: 
  Country: None (occurrence: None)
  Receive Date: 20040803
  Receipt Date: 20030929
  Transmission Date: 20050211
  Serious: Yes (Hospitalization, Other)
  Sender: FDA-Public Use
  Company Number: US-MERCK-0310USA00100

PATIENT
  Sex: Female
  Weight: 68 kg

DRUGS (4)
  1. ROBAXIN [Concomitant]
     Route: 065
     Dates: start: 20010101
  2. VIOXX [Suspect]
     Indication: PAIN
     Route: 048
     Dates: start: 20000101, end: 20010201
  3. VIOXX [Suspect]
     Indication: ARTHRITIS
     Route: 048
     Dates: start: 20000101, end: 20010201
  4. EFFEXOR [Concomitant]
     Indication: DEPRESSION
     Route: 065

REACTIONS (41)
  - ANGINA PECTORIS [None]
  - ANGIOPATHY [None]
  - AORTIC VALVE INCOMPETENCE [None]
  - CARDIAC DISORDER [None]
  - CARDIAC FAILURE CONGESTIVE [None]
  - CARDIAC MURMUR [None]
  - CARDIOMEGALY [None]
  - COAGULATION TIME PROLONGED [None]
  - CORONARY ARTERY DISEASE [None]
  - CYSTITIS [None]
  - DEEP VEIN THROMBOSIS [None]
  - DEPRESSION [None]
  - DIARRHOEA [None]
  - EYE HAEMORRHAGE [None]
  - FATIGUE [None]
  - FLUID RETENTION [None]
  - GALLBLADDER DISORDER [None]
  - GASTROINTESTINAL DISORDER [None]
  - HYPERCHOLESTEROLAEMIA [None]
  - HYPERTENSION [None]
  - HYPERTENSIVE CARDIOMYOPATHY [None]
  - HYPERTONIC BLADDER [None]
  - IMMUNE SYSTEM DISORDER [None]
  - ISCHAEMIC CARDIOMYOPATHY [None]
  - KIDNEY INFECTION [None]
  - LUNG DISORDER [None]
  - MACULAR DEGENERATION [None]
  - MITRAL VALVE INCOMPETENCE [None]
  - MYOCARDIAL INFARCTION [None]
  - MYOCARDIAL ISCHAEMIA [None]
  - NAUSEA [None]
  - ORTHOSTATIC HYPOTENSION [None]
  - OSTEOPOROSIS [None]
  - PARATHYROID TUMOUR BENIGN [None]
  - PERICARDIAL EFFUSION [None]
  - PULMONARY HYPERTENSION [None]
  - SUPRAVENTRICULAR EXTRASYSTOLES [None]
  - SYNCOPE [None]
  - THYROID DISORDER [None]
  - URINARY TRACT INFECTION [None]
  - UTERINE DISORDER [None]
